FAERS Safety Report 19975478 (Version 2)
Quarter: 2021Q4

REPORT INFORMATION
  Report Type: Report from Study
  Country: CA (occurrence: CA)
  Receive Date: 20211021
  Receipt Date: 20211123
  Transmission Date: 20220303
  Serious: Yes (Hospitalization, Other)
  Sender: FDA-Public Use
  Company Number: CA-JNJFOC-20211015721

PATIENT
  Age: 16 Year
  Sex: Male
  Weight: 53.572 kg

DRUGS (2)
  1. REMICADE [Suspect]
     Active Substance: INFLIXIMAB
     Indication: Crohn^s disease
     Route: 042
     Dates: start: 20170518
  2. TYLENOL WITH CODEINE [Suspect]
     Active Substance: ACETAMINOPHEN\CODEINE PHOSPHATE
     Indication: Product used for unknown indication
     Route: 065

REACTIONS (6)
  - Suicidal ideation [Unknown]
  - Mental disorder [Unknown]
  - Crohn^s disease [Unknown]
  - Decreased appetite [Unknown]
  - Intentional product misuse [Unknown]
  - Agitation [Unknown]

NARRATIVE: CASE EVENT DATE: 20211001
